FAERS Safety Report 13878694 (Version 1)
Quarter: 2017Q3

REPORT INFORMATION
  Report Type: Spontaneous
  Country: CA (occurrence: CA)
  Receive Date: 20170817
  Receipt Date: 20170817
  Transmission Date: 20171127
  Serious: Yes (Other)
  Sender: FDA-Public Use
  Company Number: CA-TEVA-796231ACC

PATIENT
  Age: 7 Year
  Sex: Female
  Weight: 19 kg

DRUGS (7)
  1. CISPLATIN INJECTION [Concomitant]
     Active Substance: CISPLATIN
  2. METHOTREXATE INJECTION, USP [Concomitant]
     Active Substance: METHOTREXATE
  3. DOXORUBICIN HYDROCHLORIDE INJECTION [Suspect]
     Active Substance: DOXORUBICIN HYDROCHLORIDE
     Route: 042
  4. DOXORUBICIN HYDROCHLORIDE INJECTION [Suspect]
     Active Substance: DOXORUBICIN HYDROCHLORIDE
     Indication: OSTEOSARCOMA
     Route: 042
  5. IFOSFAMIDE FOR INJECTION, USP [Suspect]
     Active Substance: IFOSFAMIDE
     Indication: OSTEOSARCOMA
  6. ETOPOSIDE. [Suspect]
     Active Substance: ETOPOSIDE
     Indication: OSTEOSARCOMA
     Route: 042
  7. DOXORUBICIN HYDROCHLORIDE INJECTION [Suspect]
     Active Substance: DOXORUBICIN HYDROCHLORIDE
     Route: 042

REACTIONS (2)
  - Ejection fraction decreased [Not Recovered/Not Resolved]
  - Cardiotoxicity [Not Recovered/Not Resolved]
